FAERS Safety Report 4851878-9 (Version None)
Quarter: 2005Q4

REPORT INFORMATION
  Report Type: 
  Country: None (occurrence: None)
  Receive Date: 20051213
  Receipt Date: 20050727
  Transmission Date: 20060501
  Serious: Yes (Death, Hospitalization)
  Sender: FDA-Public Use
  Company Number: US-BRISTOL-MYERS SQUIBB COMPANY-13052576

PATIENT
  Age: 76 Year
  Sex: Female

DRUGS (9)
  1. CISPLATIN [Suspect]
     Indication: GASTRIC CANCER
     Route: 042
     Dates: start: 20040617, end: 20040617
  2. TS-1 [Suspect]
     Indication: GASTRIC CANCER
     Route: 048
     Dates: start: 20040617, end: 20040617
  3. DURAGESIC-100 [Concomitant]
     Indication: PAIN
     Route: 062
     Dates: start: 20040610
  4. ROXANOL [Concomitant]
     Indication: PAIN
     Route: 048
     Dates: start: 20040610
  5. PREVACID [Concomitant]
     Indication: GASTROOESOPHAGEAL REFLUX DISEASE
     Route: 048
     Dates: start: 20040527
  6. PHENERGAN [Concomitant]
     Indication: NAUSEA
     Route: 048
     Dates: start: 20040617
  7. LIPITOR [Concomitant]
     Route: 048
     Dates: start: 20040701
  8. ASPIRIN [Concomitant]
     Route: 048
     Dates: start: 20040101
  9. MSIR [Concomitant]
     Route: 048
     Dates: start: 20040101

REACTIONS (6)
  - ABDOMINAL PAIN [None]
  - DEHYDRATION [None]
  - MALIGNANT NEOPLASM PROGRESSION [None]
  - NAUSEA [None]
  - RENAL FAILURE [None]
  - VOMITING [None]
